FAERS Safety Report 6301615-6 (Version None)
Quarter: 2009Q3

REPORT INFORMATION
  Report Type: 
  Country: None (occurrence: None)
  Receive Date: 20090807
  Receipt Date: 20090729
  Transmission Date: 20100115
  Serious: Yes (Hospitalization)
  Sender: FDA-Public Use
  Company Number: FR-GILEAD-2009-0023368

PATIENT
  Age: 53 Year
  Sex: Female

DRUGS (5)
  1. VIREAD [Suspect]
     Indication: HEPATITIS B
     Route: 048
     Dates: start: 20080901, end: 20090522
  2. TERALITHE [Suspect]
     Indication: DEPRESSION
     Route: 048
     Dates: start: 20040101, end: 20090522
  3. TAMOXIFEN CITRATE [Concomitant]
     Indication: BREAST CANCER
     Route: 048
     Dates: start: 20050101
  4. ACTONEL [Concomitant]
  5. LEXOMIL [Concomitant]

REACTIONS (3)
  - FANCONI SYNDROME ACQUIRED [None]
  - HYPERPARATHYROIDISM [None]
  - RENAL FAILURE [None]
